FAERS Safety Report 10231664 (Version 1)
Quarter: 2014Q2

REPORT INFORMATION
  Report Type: Spontaneous
  Country: KR (occurrence: KR)
  Receive Date: 20140611
  Receipt Date: 20140611
  Transmission Date: 20141212
  Serious: Yes (Death, Other)
  Sender: FDA-Public Use
  Company Number: PHHY2014KR068643

PATIENT
  Age: 59 Year
  Sex: Male

DRUGS (6)
  1. 5-FLUOROURACIL [Suspect]
     Indication: COLON CANCER
  2. LEUCOVORIN CALCIUM [Suspect]
     Indication: COLON CANCER
  3. IRINOTECAN [Suspect]
     Indication: COLON CANCER
  4. OXALIPLATIN [Suspect]
     Indication: COLON CANCER
  5. CETUXIMAB [Suspect]
  6. BEVACIZUMAB [Suspect]
     Indication: COLON CANCER

REACTIONS (17)
  - Septic shock [Fatal]
  - Tumour lysis syndrome [Unknown]
  - Renal impairment [Recovered/Resolved]
  - Blood creatinine increased [Recovered/Resolved]
  - Blood urea increased [Recovered/Resolved]
  - Blood uric acid increased [Recovered/Resolved]
  - Blood calcium decreased [Unknown]
  - Blood lactate dehydrogenase increased [Recovered/Resolved]
  - Hyperbilirubinaemia [Unknown]
  - Febrile neutropenia [Unknown]
  - Metastases to lung [Unknown]
  - Pulmonary mass [Unknown]
  - Metastases to lymph nodes [Unknown]
  - Metastases to liver [Unknown]
  - Metastases to peritoneum [Unknown]
  - Metastases to abdominal cavity [Unknown]
  - Abdominal distension [Unknown]
